FAERS Safety Report 9065964 (Version 2)
Quarter: 2013Q1

REPORT INFORMATION
  Report Type: Spontaneous
  Country: FR (occurrence: FR)
  Receive Date: 20130214
  Receipt Date: 20130327
  Transmission Date: 20140127
  Serious: Yes (Life-Threatening)
  Sender: FDA-Public Use
  Company Number: FR-B.I. PHARMACEUTICALS,INC./RIDGEFIELD-2013-FF-00429FF

PATIENT
  Age: 76 None
  Sex: Male

DRUGS (6)
  1. PRADAXA [Suspect]
     Indication: ATRIAL TACHYCARDIA
     Route: 048
     Dates: start: 20121018, end: 201212
  2. CORDARONE [Suspect]
     Indication: ARRHYTHMIA
     Dosage: 200 MG
     Route: 048
     Dates: start: 20121018, end: 20121114
  3. SIMVASTATINE [Suspect]
     Indication: DYSLIPIDAEMIA
     Route: 048
  4. BISOPROLOL [Suspect]
     Route: 048
     Dates: start: 201210, end: 201212
  5. FUROSEMIDE [Suspect]
     Route: 048
     Dates: start: 201210, end: 201212
  6. KARDEGIC [Suspect]
     Route: 048
     Dates: start: 201210, end: 201212

REACTIONS (1)
  - Lung disorder [Recovered/Resolved]
